FAERS Safety Report 6153202-0 (Version None)
Quarter: 2009Q2

REPORT INFORMATION
  Report Type: 
  Country: None (occurrence: None)
  Receive Date: 20090409
  Receipt Date: 20090406
  Transmission Date: 20091009
  Serious: Yes (Life-Threatening, Hospitalization, Disabling, Other)
  Sender: FDA-Public Use
  Company Number: OSCN-UK-0612S-0382

PATIENT
  Age: 63 Year
  Sex: Male

DRUGS (2)
  1. OMNISCAN [Suspect]
     Indication: DRUG USE FOR UNKNOWN INDICATION
     Dosage: 30 ML, SINGLE DOSE, I.V.
     Route: 042
     Dates: start: 20010627, end: 20010627
  2. OMNISCAN [Suspect]
     Indication: DRUG USE FOR UNKNOWN INDICATION
     Dosage: 30 ML, SINGLE DOSE, I.V.
     Route: 042
     Dates: start: 20041215, end: 20041215

REACTIONS (1)
  - NEPHROGENIC SYSTEMIC FIBROSIS [None]
